FAERS Safety Report 8112948-5 (Version None)
Quarter: 2012Q1

REPORT INFORMATION
  Report Type: 
  Country: None (occurrence: None)
  Receive Date: 20120203
  Receipt Date: 20120130
  Transmission Date: 20120608
  Serious: Yes (Other)
  Sender: FDA-Public Use
  Company Number: DE-MERCK-1201DEU00103

PATIENT
  Sex: Male
  Weight: 51 kg

DRUGS (4)
  1. PANCREATIN [Concomitant]
     Indication: PANCREATITIS
     Dosage: 1-3 DOSAGE FORMS
     Route: 048
  2. WARFARIN SODIUM [Concomitant]
     Indication: DEEP VEIN THROMBOSIS
     Route: 048
  3. JANUVIA [Suspect]
     Indication: DIABETES MELLITUS
     Route: 048
     Dates: start: 20111101, end: 20111123
  4. JANUMET [Suspect]
     Indication: DIABETES MELLITUS
     Route: 048
     Dates: start: 20111124

REACTIONS (2)
  - FLUSHING [None]
  - PRURITUS [None]
